FAERS Safety Report 9636176 (Version 1)
Quarter: 2013Q4

REPORT INFORMATION
  Report Type: Spontaneous
  Country: GB (occurrence: GB)
  Receive Date: 20131021
  Receipt Date: 20131021
  Transmission Date: 20140711
  Serious: Yes (Other)
  Sender: FDA-Public Use
  Company Number: GB-TEVA-437924ISR

PATIENT
  Age: 12 Year
  Sex: Female

DRUGS (4)
  1. METHOTREXATE [Suspect]
     Indication: JUVENILE IDIOPATHIC ARTHRITIS
     Dosage: INJECTION TO THE ARM, WEEKLY
  2. FOLIC ACID [Concomitant]
     Indication: PROPHYLAXIS
  3. FOLIC ACID [Concomitant]
     Indication: IMMUNISATION
  4. INFLIXIMAB [Concomitant]
     Indication: INFLAMMATION
     Dosage: ONCE EVERY 8 WEEKS

REACTIONS (2)
  - Uveitis [Unknown]
  - Malaise [Unknown]
